FAERS Safety Report 4656511-7 (Version None)
Quarter: 2005Q2

REPORT INFORMATION
  Report Type: 
  Country: None (occurrence: None)
  Receive Date: 20050509
  Receipt Date: 20050427
  Transmission Date: 20051028
  Serious: Yes (Other)
  Sender: FDA-Public Use
  Company Number: PHFR2005GB01653

PATIENT

DRUGS (4)
  1. NEOMYCIN [Concomitant]
  2. CYCLOPENTOLATE HCL [Concomitant]
  3. BETAMETHASONE [Concomitant]
     Route: 047
  4. CLOZARIL [Suspect]

REACTIONS (1)
  - IRITIS [None]
